FAERS Safety Report 12239033 (Version 10)
Quarter: 2016Q2

REPORT INFORMATION
  Report Type: Spontaneous
  Country: US (occurrence: US)
  Receive Date: 20160405
  Receipt Date: 20160630
  Transmission Date: 20160815
  Serious: No
  Sender: FDA-Public Use
  Company Number: US-ACTELION-A-US2016-133766

PATIENT
  Age: 65 Year
  Sex: Female
  Weight: 65.76 kg

DRUGS (6)
  1. LETAIRIS [Suspect]
     Active Substance: AMBRISENTAN
     Indication: PRODUCT USED FOR UNKNOWN INDICATION
     Dosage: 10 MG, UNK
     Route: 065
     Dates: start: 201001
  2. ADCIRCA [Concomitant]
     Active Substance: TADALAFIL
  3. UPTRAVI [Suspect]
     Active Substance: SELEXIPAG
     Dosage: 400 MCG, BID
     Route: 048
     Dates: start: 20160516
  4. COUMADIN [Concomitant]
     Active Substance: WARFARIN SODIUM
  5. LETAIRIS [Suspect]
     Active Substance: AMBRISENTAN
     Dosage: 10 MG, QD
     Route: 065
  6. UPTRAVI [Suspect]
     Active Substance: SELEXIPAG
     Indication: PULMONARY ARTERIAL HYPERTENSION
     Dosage: 200 MCG, BID
     Route: 048
     Dates: start: 20160402

REACTIONS (15)
  - Pain in extremity [Unknown]
  - Headache [Unknown]
  - Vomiting [Unknown]
  - Pain [Unknown]
  - Anticipatory anxiety [Unknown]
  - Feeling hot [Unknown]
  - Hyperhidrosis [Unknown]
  - Pulmonary oedema [Unknown]
  - Feeling abnormal [Unknown]
  - Pain in jaw [Unknown]
  - Drug intolerance [Unknown]
  - Oedema peripheral [Unknown]
  - Dizziness [Unknown]
  - Condition aggravated [Unknown]
  - Nausea [Unknown]

NARRATIVE: CASE EVENT DATE: 20160516
